FAERS Safety Report 17192338 (Version 2)
Quarter: 2020Q1

REPORT INFORMATION
  Report Type: Spontaneous
  Country: TR (occurrence: TR)
  Receive Date: 20191223
  Receipt Date: 20200108
  Transmission Date: 20200409
  Serious: Yes (Life-Threatening, Hospitalization, Other)
  Sender: FDA-Public Use
  Company Number: NVSC2019TR075745

PATIENT
  Age: 14 Year
  Sex: Female
  Weight: 50 kg

DRUGS (1)
  1. VALPROATE ACID [Suspect]
     Active Substance: VALPROATE SODIUM
     Indication: PRODUCT USED FOR UNKNOWN INDICATION
     Dosage: 7500 MG, 15 TABLETS (500 MG EXTENDED RELEASE TABLETS)
     Route: 065

REACTIONS (4)
  - Intentional product misuse [Unknown]
  - Suicide attempt [Unknown]
  - Poisoning [Unknown]
  - Lethargy [Recovered/Resolved]
